FAERS Safety Report 16707162 (Version 1)
Quarter: 2019Q3

REPORT INFORMATION
  Report Type: Spontaneous
  Country: FR (occurrence: FR)
  Receive Date: 20190815
  Receipt Date: 20190815
  Transmission Date: 20191004
  Serious: Yes (Life-Threatening)
  Sender: FDA-Public Use
  Company Number: PHHY2019FR187996

PATIENT
  Age: 42 Year
  Sex: Female
  Weight: 75.5 kg

DRUGS (3)
  1. PARACETAMOL [Suspect]
     Active Substance: ACETAMINOPHEN
     Indication: TOXICITY TO VARIOUS AGENTS
     Dosage: 4 G, UNK
     Route: 048
  2. BROMAZEPAM [Suspect]
     Active Substance: BROMAZEPAM
     Indication: TOXICITY TO VARIOUS AGENTS
     Dosage: 60 DF, UNK
     Route: 048
  3. TERCIAN [Suspect]
     Active Substance: CYAMEMAZINE
     Indication: TOXICITY TO VARIOUS AGENTS
     Dosage: 90 DF, UNK
     Route: 048

REACTIONS (3)
  - Hypotension [Recovered/Resolved]
  - Toxicity to various agents [Recovered/Resolved]
  - Coma [Recovered/Resolved]

NARRATIVE: CASE EVENT DATE: 20181111
